FAERS Safety Report 21960937 (Version 2)
Quarter: 2023Q1

REPORT INFORMATION
  Report Type: Spontaneous
  Country: ES (occurrence: ES)
  Receive Date: 20230207
  Receipt Date: 20230217
  Transmission Date: 20230418
  Serious: Yes (Hospitalization, Other)
  Sender: FDA-Public Use
  Company Number: ES-CHEPLA-2023001558

PATIENT
  Age: 28 Year
  Sex: Female

DRUGS (5)
  1. PREDNISONE [Suspect]
     Active Substance: PREDNISONE
     Indication: Pericarditis
     Dosage: 0.5 MG/KG, QD, PROGRESSIVELY DECREASED (TREATMENT PERICARDITIS)
  2. COLCHICINE [Suspect]
     Active Substance: COLCHICINE
     Indication: Pericarditis
     Dosage: 1 MG, QD
  3. ENOXAPARIN SODIUM [Suspect]
     Active Substance: ENOXAPARIN SODIUM
     Dosage: 40 MG, QD
  4. HUMAN IMMUNOGLOBULIN G [Suspect]
     Active Substance: HUMAN IMMUNOGLOBULIN G
     Indication: Guillain-Barre syndrome
     Dosage: 0.40 G/KG, QD, FOR 5-CONSECUTIVE DAYS (TREATMENT GUILLAIN-BARRE SYNDROME)
     Route: 042
  5. BUTYL 2-CYANOACRYLATE [Concomitant]
     Indication: Vascular pseudoaneurysm
     Dosage: UNK

REACTIONS (7)
  - Vascular pseudoaneurysm [Recovered/Resolved]
  - Disease progression [Recovered/Resolved]
  - Dyspnoea [Recovered/Resolved]
  - Quadriplegia [Recovered/Resolved]
  - Acute respiratory failure [Recovered/Resolved]
  - Ischaemia [Recovered/Resolved]
  - Brain stem haematoma [Recovered/Resolved]
